FAERS Safety Report 20604008 (Version 4)
Quarter: 2022Q3

REPORT INFORMATION
  Report Type: Spontaneous
  Country: US (occurrence: US)
  Receive Date: 20220316
  Receipt Date: 20220721
  Transmission Date: 20221027
  Serious: No
  Sender: FDA-Public Use
  Company Number: US-SA-SAC20220311000195

PATIENT
  Age: 36 Year
  Sex: Female

DRUGS (1)
  1. AUBAGIO [Suspect]
     Active Substance: TERIFLUNOMIDE
     Indication: Multiple sclerosis
     Dosage: 7 MG, QD
     Route: 048
     Dates: start: 20211213

REACTIONS (8)
  - Facial pain [Unknown]
  - Chest pain [Unknown]
  - Insomnia [Unknown]
  - Pain [Unknown]
  - Liver disorder [Unknown]
  - Liver function test abnormal [Unknown]
  - Diarrhoea [Recovered/Resolved]
  - Drug ineffective [Unknown]
